FAERS Safety Report 9791058 (Version 1)
Quarter: 2013Q4

REPORT INFORMATION
  Report Type: Spontaneous
  Country: US (occurrence: US)
  Receive Date: 20131231
  Receipt Date: 20131231
  Transmission Date: 20140711
  Serious: No
  Sender: FDA-Public Use
  Company Number: US-BIOGENIDEC-2013BI116702

PATIENT
  Age: 63 Year
  Sex: Female

DRUGS (9)
  1. TECFIDERA [Suspect]
     Indication: MULTIPLE SCLEROSIS
     Route: 048
     Dates: start: 20131118, end: 20131124
  2. TECFIDERA [Suspect]
     Indication: MULTIPLE SCLEROSIS
     Route: 048
     Dates: start: 20131125
  3. AMINOPYRIDINE [Concomitant]
  4. CALCIUM [Concomitant]
  5. FISH OIL [Concomitant]
  6. NITROFURANTOIN [Concomitant]
  7. NYSTATIN [Concomitant]
  8. SUMATRIPTAN [Concomitant]
  9. VITAMIN D [Concomitant]

REACTIONS (3)
  - Swelling face [Recovered/Resolved]
  - Hot flush [Recovered/Resolved]
  - Abdominal pain upper [Unknown]
